FAERS Safety Report 7601834-2 (Version None)
Quarter: 2011Q3

REPORT INFORMATION
  Report Type: 
  Country: None (occurrence: None)
  Receive Date: 20110711
  Receipt Date: 20110706
  Transmission Date: 20111222
  Serious: Yes (Other)
  Sender: FDA-Public Use
  Company Number: US-PFIZER INC-2011152923

PATIENT
  Age: 50 Year
  Sex: Female

DRUGS (9)
  1. RISPERIDONE [Suspect]
     Dosage: 1.5 MG, UNK
  2. CYMBALTA [Concomitant]
     Dosage: UNK
  3. TRAZODONE [Concomitant]
     Dosage: UNK
  4. GEODON [Suspect]
     Dosage: 320 MG
  5. MIRAPEX [Concomitant]
     Dosage: UNK
  6. LAMICTAL [Concomitant]
     Dosage: UNK
  7. PROVIGIL [Concomitant]
     Dosage: UNK
  8. AMBIEN [Concomitant]
     Dosage: UNK
  9. ATIVAN [Concomitant]

REACTIONS (1)
  - TARDIVE DYSKINESIA [None]
